FAERS Safety Report 5137018-X (Version None)
Quarter: 2006Q4

REPORT INFORMATION
  Report Type: 
  Country: None (occurrence: None)
  Receive Date: 20061030
  Receipt Date: 20061016
  Transmission Date: 20070319
  Serious: Yes (Hospitalization)
  Sender: FDA-Public Use
  Company Number: PHHO2006JP17384

PATIENT
  Sex: Male

DRUGS (2)
  1. NORVASC [Concomitant]
     Indication: HYPERTENSION
     Dosage: 2.5 MG, UNK
     Route: 048
     Dates: start: 20021106, end: 20050729
  2. DIOVAN [Suspect]
     Indication: HYPERTENSION
     Dosage: 80 MG, QD
     Route: 048
     Dates: start: 20021106, end: 20060428

REACTIONS (3)
  - BLOOD PRESSURE DECREASED [None]
  - RENAL CELL CARCINOMA STAGE UNSPECIFIED [None]
  - SURGERY [None]
